FAERS Safety Report 13344446 (Version 10)
Quarter: 2022Q4

REPORT INFORMATION
  Report Type: Report from Study
  Country: CN (occurrence: None)
  Receive Date: 20170317
  Receipt Date: 20221017
  Transmission Date: 20230112
  Serious: Yes (Hospitalization)
  Sender: FDA-Public Use
  Company Number: CN-ROCHE-1903883

PATIENT
  Age: 64 Year
  Sex: Female
  Weight: 48 kg

DRUGS (41)
  1. ALECTINIB [Suspect]
     Active Substance: ALECTINIB
     Indication: Non-small cell lung cancer
     Dosage: DATE OF MOST RECENT DOSE PRIOR TO EVENT (ACUTE RENAL FAILURE) ONSET: 07/MAR/2017 (600MG)?DATE OF MOS
     Route: 048
     Dates: start: 20170208
  2. ALECTINIB [Suspect]
     Active Substance: ALECTINIB
     Dosage: REDUCED DOSE DUE TO ACUTE RENAL FAILURE
     Route: 048
     Dates: start: 20170314
  3. ALECTINIB [Suspect]
     Active Substance: ALECTINIB
     Dosage: REDUCED DOSE FOLLOWING ANAEMIA
     Route: 048
     Dates: start: 20171123
  4. NATEGLINIDE [Concomitant]
     Active Substance: NATEGLINIDE
     Indication: Diabetes mellitus
     Dates: start: 20170109
  5. NATEGLINIDE [Concomitant]
     Active Substance: NATEGLINIDE
     Indication: Hypoglycaemia
  6. METFORMIN HYDROCHLORIDE [Concomitant]
     Active Substance: METFORMIN HYDROCHLORIDE
     Indication: Diabetes mellitus
     Route: 048
     Dates: start: 20170109, end: 20170207
  7. METFORMIN HYDROCHLORIDE [Concomitant]
     Active Substance: METFORMIN HYDROCHLORIDE
     Indication: Hypoglycaemia
  8. NIFEDIPINE [Concomitant]
     Active Substance: NIFEDIPINE
     Indication: Hypertension
     Dosage: DOSE: 300 MG EVERY DAY
     Dates: start: 20170109
  9. NIFEDIPINE [Concomitant]
     Active Substance: NIFEDIPINE
     Indication: Hypoglycaemia
  10. ASPIRIN [Concomitant]
     Active Substance: ASPIRIN
     Indication: Cerebral infarction
     Dosage: DOSE: 10 MG EVERY DAY
     Dates: start: 201606
  11. ROSUVASTATIN CALCIUM [Concomitant]
     Active Substance: ROSUVASTATIN CALCIUM
     Indication: Cerebral infarction
     Dosage: DOSE: 10 MG EVERY DAY
     Dates: start: 20170209
  12. FUROSEMIDE [Concomitant]
     Active Substance: FUROSEMIDE
     Dates: start: 20170307, end: 20170307
  13. GLUTATHIONE [Concomitant]
     Active Substance: GLUTATHIONE
     Dosage: REDUCED GLUTATHIONE FOR INJECTION
     Dates: start: 20170307, end: 20170314
  14. INSULIN ASPART [Concomitant]
     Active Substance: INSULIN ASPART
     Indication: Blood glucose
     Dates: start: 20170307, end: 20170314
  15. POTASSIUM CHLORIDE [Concomitant]
     Active Substance: POTASSIUM CHLORIDE
     Indication: Hypokalaemia
     Dates: start: 20170308, end: 20170308
  16. POTASSIUM CHLORIDE [Concomitant]
     Active Substance: POTASSIUM CHLORIDE
     Dates: start: 20170308, end: 20170308
  17. POTASSIUM CHLORIDE [Concomitant]
     Active Substance: POTASSIUM CHLORIDE
     Dates: start: 20170602, end: 20170606
  18. POTASSIUM CHLORIDE [Concomitant]
     Active Substance: POTASSIUM CHLORIDE
     Dates: start: 20170630, end: 20170831
  19. POTASSIUM CHLORIDE [Concomitant]
     Active Substance: POTASSIUM CHLORIDE
     Dates: start: 20170901
  20. POTASSIUM CHLORIDE [Concomitant]
     Active Substance: POTASSIUM CHLORIDE
     Dates: start: 20171114, end: 20171115
  21. PHOSPHOLIPID [Concomitant]
     Active Substance: PHOSPHOLIPID
     Dates: start: 20170307, end: 20170322
  22. SODIUM BICARBONATE [Concomitant]
     Active Substance: SODIUM BICARBONATE
     Dates: start: 20170307, end: 20170321
  23. IRON PROTEINSUCCINYLATE [Concomitant]
     Route: 048
     Dates: start: 20170310, end: 20170317
  24. ACARBOSE [Concomitant]
     Active Substance: ACARBOSE
     Indication: Blood glucose
     Dates: start: 20170312, end: 20170322
  25. HERBALS\DIAMMONIUM GLYCYRRHIZINATE [Concomitant]
     Active Substance: HERBALS\DIAMMONIUM GLYCYRRHIZINATE
     Indication: Liver injury
     Dates: start: 20170322, end: 20170404
  26. HERBALS\DIAMMONIUM GLYCYRRHIZINATE [Concomitant]
     Active Substance: HERBALS\DIAMMONIUM GLYCYRRHIZINATE
     Dates: start: 20170408, end: 20180109
  27. ZOLEDRONIC ACID [Concomitant]
     Active Substance: ZOLEDRONIC ACID
     Indication: Metastases to bone
     Dates: start: 20170408, end: 20170408
  28. ZOLEDRONIC ACID [Concomitant]
     Active Substance: ZOLEDRONIC ACID
     Dates: start: 20170501, end: 20170501
  29. ZOLEDRONIC ACID [Concomitant]
     Active Substance: ZOLEDRONIC ACID
     Dates: start: 20170519, end: 20170519
  30. ZOLEDRONIC ACID [Concomitant]
     Active Substance: ZOLEDRONIC ACID
     Dates: start: 20170614, end: 20170614
  31. ZOLEDRONIC ACID [Concomitant]
     Active Substance: ZOLEDRONIC ACID
     Dates: start: 20170707, end: 20170707
  32. ZOLEDRONIC ACID [Concomitant]
     Active Substance: ZOLEDRONIC ACID
     Dates: start: 20170913, end: 20170913
  33. ZOLEDRONIC ACID [Concomitant]
     Active Substance: ZOLEDRONIC ACID
     Dates: start: 20171019, end: 20171019
  34. ZOLEDRONIC ACID [Concomitant]
     Active Substance: ZOLEDRONIC ACID
     Dates: start: 20171111, end: 20171111
  35. ZOLEDRONIC ACID [Concomitant]
     Active Substance: ZOLEDRONIC ACID
     Dates: start: 20171209, end: 20171209
  36. ZOLEDRONIC ACID [Concomitant]
     Active Substance: ZOLEDRONIC ACID
     Dates: start: 20180105, end: 20180105
  37. LACTULOSE [Concomitant]
     Active Substance: LACTULOSE
     Indication: Constipation
     Route: 048
     Dates: start: 20170214, end: 20170220
  38. GLYCERIN [Concomitant]
     Active Substance: GLYCERIN
     Dates: start: 20170216, end: 20170218
  39. GLYCERIN [Concomitant]
     Active Substance: GLYCERIN
     Dates: start: 20170324, end: 20170421
  40. ADEMETIONINE BUTANEDISULFONATE [Concomitant]
     Active Substance: ADEMETIONINE BUTANEDISULFONATE
     Indication: Cholestasis
     Dates: start: 20170602, end: 20180109
  41. CEFMETAZOLE SODIUM [Concomitant]
     Active Substance: CEFMETAZOLE SODIUM
     Dates: start: 20170713, end: 20170715

REACTIONS (2)
  - Acute kidney injury [Recovered/Resolved]
  - Anaemia [Recovered/Resolved]

NARRATIVE: CASE EVENT DATE: 20170307
